FAERS Safety Report 10551527 (Version 1)
Quarter: 2014Q4

REPORT INFORMATION
  Report Type: Spontaneous
  Country: US (occurrence: None)
  Receive Date: 20141028
  Receipt Date: 20141028
  Transmission Date: 20150529
  Serious: Yes (Disabling)
  Sender: FDA-Public Use
  Company Number: None

PATIENT
  Age: 4 Year
  Sex: Male
  Weight: 19.05 kg

DRUGS (2)
  1. TENEX [Concomitant]
     Active Substance: GUANFACINE HYDROCHLORIDE
     Indication: ATTENTION DEFICIT/HYPERACTIVITY DISORDER
     Dosage: GUANFACINE 1MG    1/2 TAB TID  ORAL
     Route: 048
     Dates: start: 20140514
  2. TENEX [Concomitant]
     Active Substance: GUANFACINE HYDROCHLORIDE
     Indication: ABNORMAL BEHAVIOUR
     Dosage: GUANFACINE 1MG    1/2 TAB TID  ORAL
     Route: 048
     Dates: start: 20140514

REACTIONS (2)
  - Somnolence [None]
  - Educational problem [None]

NARRATIVE: CASE EVENT DATE: 20141007
